FAERS Safety Report 9234441 (Version 3)
Quarter: 2013Q2

REPORT INFORMATION
  Report Type: Spontaneous
  Country: FR (occurrence: FR)
  Receive Date: 20130416
  Receipt Date: 20130602
  Transmission Date: 20140414
  Serious: Yes (Life-Threatening)
  Sender: FDA-Public Use
  Company Number: FR-ASTRAZENECA-2013SE24576

PATIENT
  Age: 14163 Day
  Sex: Female

DRUGS (18)
  1. NAROPEINE [Suspect]
     Indication: ANAESTHESIA
     Dosage: 7.5 MG/ML, 1 DF ONCE/SINGLE ADMINISTRATION
     Route: 042
     Dates: start: 20111123, end: 20111123
  2. PROPOFOL LIPURO [Suspect]
     Indication: ANAESTHESIA
     Route: 042
     Dates: start: 20111123, end: 20111123
  3. SUPRANE [Suspect]
     Indication: ANAESTHESIA
     Dosage: ONCE/SINGLE ADMINISTRATION
     Route: 055
     Dates: start: 20111123, end: 20111123
  4. SUPRANE [Suspect]
     Indication: ANAESTHESIA
     Dosage: ONCE/SINGLE ADMINISTRATION
     Route: 055
     Dates: start: 20111123, end: 20111123
  5. SUPRANE [Suspect]
     Indication: ANAESTHESIA
     Dosage: ONCE/SINGLE ADMINISTRATION
     Route: 055
     Dates: start: 20111123, end: 20111123
  6. SUPRANE [Suspect]
     Indication: ANAESTHESIA
     Dosage: ONCE/SINGLE ADMINISTRATION
     Route: 055
     Dates: start: 20111123, end: 20111123
  7. PROSTIGMINE [Suspect]
     Route: 042
     Dates: start: 20111123, end: 20111123
  8. PERFALGAN [Suspect]
     Indication: PAIN
     Route: 042
     Dates: start: 20111123, end: 20111123
  9. ATROPINE LAVOISIER [Suspect]
     Route: 042
     Dates: start: 20111123, end: 20111123
  10. DROLEPTAN [Suspect]
     Indication: PROPHYLAXIS
     Route: 042
     Dates: start: 20111123, end: 20111123
  11. SPASFON [Suspect]
     Indication: GASTROINTESTINAL DISORDER
     Route: 042
     Dates: start: 20111123, end: 20111123
  12. SUFENTANIL [Suspect]
     Indication: ANAESTHESIA
     Route: 042
     Dates: start: 20111123, end: 20111123
  13. SUFENTANIL [Suspect]
     Indication: ANAESTHESIA
     Route: 042
     Dates: start: 20111123, end: 20111123
  14. NIMBEX [Suspect]
     Indication: ANAESTHESIA
     Route: 042
     Dates: start: 20111123, end: 20111123
  15. NIMBEX [Suspect]
     Indication: ANAESTHESIA
     Route: 042
     Dates: start: 20111123, end: 20111123
  16. ONDANSETRON [Suspect]
     Indication: PROPHYLAXIS
     Route: 042
     Dates: start: 20111123, end: 20111123
  17. CEFAZOLINE PANPHARMA [Suspect]
     Indication: PROPHYLAXIS
     Dosage: 2G/10ML 1 DF ONCE/SINGLE ADMINISTRATION
     Route: 042
     Dates: start: 20111123, end: 20111123
  18. PROFENID [Suspect]
     Indication: PAIN
     Route: 042
     Dates: start: 20111123, end: 20111123

REACTIONS (5)
  - Hypoxia [Recovered/Resolved]
  - Myocardial stunning [Recovered/Resolved]
  - Interstitial lung disease [Unknown]
  - Dyspnoea [Recovered/Resolved]
  - Circulatory collapse [Recovered/Resolved]
